FAERS Safety Report 15784301 (Version 3)
Quarter: 2019Q3

REPORT INFORMATION
  Report Type: Spontaneous
  Country: US (occurrence: US)
  Receive Date: 20190103
  Receipt Date: 20190725
  Transmission Date: 20191004
  Serious: Yes (Hospitalization)
  Sender: FDA-Public Use
  Company Number: US-TAKEDA-2018MPI017106

PATIENT
  Sex: Male
  Weight: 97.51 kg

DRUGS (1)
  1. NINLARO [Suspect]
     Active Substance: IXAZOMIB CITRATE
     Indication: PLASMA CELL MYELOMA
     Dosage: 4 MILLIGRAM, UNK
     Route: 048
     Dates: start: 20160915

REACTIONS (4)
  - Diarrhoea [Unknown]
  - Salmonellosis [Recovering/Resolving]
  - Abdominal discomfort [Unknown]
  - Ageusia [Unknown]
